FAERS Safety Report 8600130-4 (Version None)
Quarter: 2012Q3

REPORT INFORMATION
  Report Type: 
  Country: None (occurrence: None)
  Receive Date: 20120817
  Receipt Date: 20120814
  Transmission Date: 20120928
  Serious: Yes (Other)
  Sender: FDA-Public Use
  Company Number: US-AMGEN-USASP2012051368

PATIENT
  Sex: Female
  Weight: 47.6 kg

DRUGS (4)
  1. HERCEPTIN [Concomitant]
     Indication: BREAST CANCER
     Dosage: UNK UNK, QWK
     Dates: start: 20120514
  2. TAXOTERE [Concomitant]
     Indication: BREAST CANCER
     Dosage: UNK UNK, Q3WK
     Dates: start: 20120514
  3. CARBOPLATIN [Concomitant]
     Indication: BREAST CANCER
     Dosage: UNK UNK, Q3WK
     Dates: start: 20120514
  4. NEUPOGEN [Suspect]
     Indication: NEUTROPENIA
     Dosage: 300 MUG, QD
     Dates: start: 20120501

REACTIONS (3)
  - BONE PAIN [None]
  - WHITE BLOOD CELL COUNT DECREASED [None]
  - METASTASES TO LIVER [None]
